FAERS Safety Report 6811880-4 (Version None)
Quarter: 2010Q3

REPORT INFORMATION
  Report Type: 
  Country: None (occurrence: None)
  Receive Date: 20100701
  Receipt Date: 20100615
  Transmission Date: 20110219
  Serious: Yes (Hospitalization, Other)
  Sender: FDA-Public Use
  Company Number: US-BAYER-200943864NA

PATIENT
  Age: 18 Year
  Sex: Female
  Weight: 51 kg

DRUGS (4)
  1. YAZ [Suspect]
     Indication: CONTRACEPTION
     Route: 048
     Dates: start: 20070701, end: 20071224
  2. VITAMIN C [Concomitant]
     Dates: start: 20000101
  3. NSAID'S [Concomitant]
     Dates: start: 20000101
  4. IBUPROFEN [Concomitant]
     Indication: BACK PAIN
     Dosage: TOTAL DAILY DOSE: 1200 MG
     Route: 065

REACTIONS (5)
  - DEEP VEIN THROMBOSIS [None]
  - INFLAMMATION [None]
  - MUSCULOSKELETAL STIFFNESS [None]
  - OEDEMA PERIPHERAL [None]
  - PAIN [None]
